FAERS Safety Report 10193374 (Version 1)
Quarter: 2014Q2

REPORT INFORMATION
  Report Type: Spontaneous
  Country: US (occurrence: US)
  Receive Date: 20140524
  Receipt Date: 20140524
  Transmission Date: 20141212
  Serious: No
  Sender: FDA-Public Use
  Company Number: US-SA-2013SA127581

PATIENT
  Age: 63 Year
  Sex: Female
  Weight: 110 kg

DRUGS (7)
  1. LANTUS SOLOSTAR [Suspect]
     Indication: TYPE 2 DIABETES MELLITUS
     Dosage: TAKEN FROM- 5 YEARS AGO, DOSE- 70/30 UNITS
     Route: 051
  2. SOLOSTAR [Concomitant]
     Indication: TYPE 2 DIABETES MELLITUS
     Dosage: TAKEN FROM- 5 YEARS AGO,
  3. PREDNISONE [Concomitant]
     Indication: MUSCLE DISORDER
     Dosage: TAKEN FROM- 30 YEARS
     Route: 065
  4. IMURAN [Concomitant]
     Dosage: TAKEN FROM- 10 YEARS
     Route: 065
  5. WARFARIN [Concomitant]
     Indication: THROMBOSIS
     Dosage: TAKEN FROM- 24 YEARS
     Route: 065
  6. CELEBREX [Concomitant]
     Indication: ARTHROPATHY
     Route: 065
  7. ROPINIROLE [Concomitant]
     Indication: RESTLESS LEGS SYNDROME
     Dosage: TAKEN FROM- 4-5 YEARS
     Route: 065

REACTIONS (1)
  - Injury associated with device [Unknown]
